FAERS Safety Report 25694766 (Version 2)
Quarter: 2025Q3

REPORT INFORMATION
  Report Type: Spontaneous
  Country: JP (occurrence: JP)
  Receive Date: 20250818
  Receipt Date: 20250918
  Transmission Date: 20251021
  Serious: No
  Sender: NOVO NORDISK
  Company Number: JP-NOVOPROD-1500230

PATIENT
  Age: 8 Decade
  Sex: Male
  Weight: 60.1 kg

DRUGS (2)
  1. NOVORAPID [Suspect]
     Active Substance: INSULIN ASPART
     Indication: Type 2 diabetes mellitus
     Route: 058
     Dates: end: 20250502
  2. LANTUS [Concomitant]
     Active Substance: INSULIN GLARGINE
     Indication: Type 2 diabetes mellitus
     Dosage: 16 IU, QD
     Dates: end: 20250501

REACTIONS (1)
  - Rheumatoid arthritis [Unknown]
